FAERS Safety Report 8088948-0 (Version None)
Quarter: 2012Q1

REPORT INFORMATION
  Report Type: 
  Country: None (occurrence: None)
  Receive Date: 20120128
  Receipt Date: 20110624
  Transmission Date: 20120608
  Serious: Yes (Other)
  Sender: FDA-Public Use
  Company Number: US-ABBOTT-11P-163-0834377-00

PATIENT
  Age: 22 Year
  Sex: Female

DRUGS (1)
  1. HUMIRA [Suspect]
     Indication: PSORIASIS
     Dates: start: 20101201

REACTIONS (5)
  - INJECTION SITE ERYTHEMA [None]
  - CHOLELITHIASIS [None]
  - INJECTION SITE PAPULE [None]
  - SYPHILIS [None]
  - INJECTION SITE PRURITUS [None]
